FAERS Safety Report 8470545-6 (Version None)
Quarter: 2012Q2

REPORT INFORMATION
  Report Type: 
  Country: None (occurrence: None)
  Receive Date: 20120627
  Receipt Date: 20120619
  Transmission Date: 20120825
  Serious: Yes (Other)
  Sender: FDA-Public Use
  Company Number: PHHY2012MX054005

PATIENT
  Sex: Female

DRUGS (1)
  1. EXFORGE [Suspect]
     Indication: HYPERTENSION
     Dosage: 1 TABLET (160/5 MG), DAILY
     Dates: start: 20090601

REACTIONS (6)
  - SHOCK [None]
  - ABDOMINAL PAIN UPPER [None]
  - LACRIMAL DISORDER [None]
  - SYNCOPE [None]
  - HYPOTENSION [None]
  - SALIVARY GLAND DISORDER [None]
